FAERS Safety Report 13702543 (Version 2)
Quarter: 2017Q3

REPORT INFORMATION
  Report Type: Report from Study
  Country: BE (occurrence: BE)
  Receive Date: 20170629
  Receipt Date: 20170721
  Transmission Date: 20171127
  Serious: Yes (Hospitalization, Other)
  Sender: FDA-Public Use
  Company Number: PHHY2017BE072597

PATIENT
  Age: 66 Year
  Sex: Female
  Weight: 45 kg

DRUGS (8)
  1. PANTOMED (PANTOPRAZOLE SODIUM) [Concomitant]
     Active Substance: PANTOPRAZOLE SODIUM
     Indication: ABDOMINAL PAIN UPPER
     Dosage: 40 MG, QD
     Route: 065
     Dates: start: 20170502
  2. PARACETAMOL [Concomitant]
     Active Substance: ACETAMINOPHEN
     Indication: BLADDER PAIN
     Dosage: 1 G, PRN (WHEN NECESSARY)
     Route: 065
     Dates: start: 20170515
  3. URFADYN [Concomitant]
     Active Substance: NIFURTOINOL
     Indication: HYDRONEPHROSIS
     Dosage: 100 MG, BID
     Dates: start: 20170329
  4. MICTONORM [Concomitant]
     Active Substance: PROPIVERINE HYDROCHLORIDE
     Indication: HYDRONEPHROSIS
     Dosage: 15 MG, QD
     Route: 065
     Dates: start: 201703
  5. RIOPAN [Concomitant]
     Active Substance: MAGALDRATE
     Indication: ABDOMINAL PAIN UPPER
     Dosage: 800 MG, UNK (4 PER DAY)
     Route: 065
     Dates: start: 20170502
  6. AFINITOR [Suspect]
     Active Substance: EVEROLIMUS
     Indication: BREAST CANCER
     Dosage: 10 MG, QD
     Route: 048
     Dates: start: 20170210
  7. AROMASIN [Concomitant]
     Active Substance: EXEMESTANE
     Indication: BREAST CANCER METASTATIC
     Dosage: 25 MG, QD
     Route: 065
     Dates: start: 20170210
  8. XGEVA [Concomitant]
     Active Substance: DENOSUMAB
     Indication: BREAST CANCER METASTATIC
     Dosage: 120 MG, UNK
     Route: 065
     Dates: start: 20160812

REACTIONS (31)
  - Abdominal pain [Unknown]
  - Lipase increased [Unknown]
  - Serum ferritin increased [Unknown]
  - Neutrophil count decreased [Unknown]
  - Aspartate aminotransferase increased [Unknown]
  - C-reactive protein increased [Unknown]
  - Red blood cell count decreased [Unknown]
  - Lymphocyte count decreased [Unknown]
  - Tumour marker increased [Unknown]
  - Glomerular filtration rate decreased [Recovered/Resolved]
  - Blood urine present [Recovering/Resolving]
  - Metastases to bone [Unknown]
  - Blood cholesterol increased [Unknown]
  - Blood triglycerides increased [Unknown]
  - Blood phosphorus decreased [Unknown]
  - Gamma-glutamyltransferase increased [Unknown]
  - Low density lipoprotein increased [Unknown]
  - Haemoglobin decreased [Unknown]
  - Cholelithiasis [Unknown]
  - Blood albumin increased [Unknown]
  - Cystitis [Not Recovered/Not Resolved]
  - Dysuria [Recovering/Resolving]
  - Coeliac artery stenosis [Unknown]
  - Blood urea decreased [Unknown]
  - Blood lactate dehydrogenase increased [Unknown]
  - Anion gap increased [Unknown]
  - Biliary dilatation [Unknown]
  - Haematocrit decreased [Unknown]
  - White blood cell count decreased [Unknown]
  - Blood ketone body present [Unknown]
  - Blood creatine increased [Unknown]

NARRATIVE: CASE EVENT DATE: 20170512
